FAERS Safety Report 23841233 (Version 1)
Quarter: 2024Q2

REPORT INFORMATION
  Report Type: Spontaneous
  Country: AU (occurrence: AU)
  Receive Date: 20240510
  Receipt Date: 20240510
  Transmission Date: 20240716
  Serious: Yes (Other)
  Sender: FDA-Public Use
  Company Number: AU-JNJFOC-20240490065

PATIENT
  Age: 6 Year
  Sex: Male

DRUGS (4)
  1. CONCERTA [Suspect]
     Active Substance: METHYLPHENIDATE HYDROCHLORIDE
     Indication: Product used for unknown indication
     Route: 065
     Dates: start: 20240131, end: 20240304
  2. RITALIN LA [Suspect]
     Active Substance: METHYLPHENIDATE HYDROCHLORIDE
     Indication: Anxiety
     Route: 048
  3. SERTRALINE HYDROCHLORIDE [Suspect]
     Active Substance: SERTRALINE HYDROCHLORIDE
     Indication: Anxiety
     Route: 048
     Dates: start: 20240305, end: 20240311
  4. RITALIN [Suspect]
     Active Substance: METHYLPHENIDATE HYDROCHLORIDE
     Indication: Product used for unknown indication
     Route: 065
     Dates: start: 202303

REACTIONS (19)
  - Suicidal behaviour [Not Recovered/Not Resolved]
  - Self-destructive behaviour [Recovered/Resolved]
  - Aggression [Not Recovered/Not Resolved]
  - Vomiting [Recovered/Resolved]
  - Confusional state [Not Recovered/Not Resolved]
  - Mood swings [Not Recovered/Not Resolved]
  - Behaviour disorder [Not Recovered/Not Resolved]
  - Abnormal dreams [Unknown]
  - Akathisia [Recovered/Resolved]
  - Cerebral disorder [Unknown]
  - Cognitive disorder [Recovered/Resolved]
  - Defiant behaviour [Not Recovered/Not Resolved]
  - Disinhibited social engagement disorder of childhood [Recovered/Resolved]
  - Disturbance in attention [Unknown]
  - Euphoric mood [Recovered/Resolved]
  - Impulsive behaviour [Recovering/Resolving]
  - Obstructive airways disorder [Unknown]
  - Oppositional defiant disorder [Not Recovered/Not Resolved]
  - Salivary hypersecretion [Not Recovered/Not Resolved]

NARRATIVE: CASE EVENT DATE: 20240305
